FAERS Safety Report 5676255-2 (Version None)
Quarter: 2008Q1

REPORT INFORMATION
  Report Type: 
  Country: None (occurrence: None)
  Receive Date: 20080321
  Receipt Date: 20080306
  Transmission Date: 20080703
  Serious: Yes (Other)
  Sender: FDA-Public Use
  Company Number: AU-PFIZER INC-2008003439

PATIENT
  Sex: Male

DRUGS (3)
  1. SUTENT [Suspect]
     Indication: METASTATIC RENAL CELL CARCINOMA
     Route: 048
  2. PANADEINE [Concomitant]
     Route: 048
  3. ENDONE [Concomitant]
     Route: 048

REACTIONS (11)
  - ALOPECIA [None]
  - DEPRESSION [None]
  - DRUG TOXICITY [None]
  - GASTROOESOPHAGEAL REFLUX DISEASE [None]
  - LIVER FUNCTION TEST ABNORMAL [None]
  - MOUTH ULCERATION [None]
  - MUCOSAL INFLAMMATION [None]
  - SKIN LESION [None]
  - THROMBOCYTOPENIA [None]
  - ULCER [None]
  - YELLOW SKIN [None]
